FAERS Safety Report 8403478-1 (Version None)
Quarter: 2012Q2

REPORT INFORMATION
  Report Type: 
  Country: None (occurrence: None)
  Receive Date: 20120601
  Receipt Date: 20120503
  Transmission Date: 20120825
  Serious: No
  Sender: FDA-Public Use
  Company Number: US-ASTRAZENECA-2012SE28922

PATIENT
  Age: 38 Year
  Sex: Male

DRUGS (1)
  1. SYMBICORT [Suspect]
     Dosage: 160/4.5 MCG, FREQUENCY UNKNOWN
     Route: 055

REACTIONS (4)
  - WHEEZING [None]
  - CHEST DISCOMFORT [None]
  - OBSTRUCTIVE AIRWAYS DISORDER [None]
  - INTENTIONAL DRUG MISUSE [None]
